FAERS Safety Report 22171412 (Version 8)
Quarter: 2023Q2

REPORT INFORMATION
  Report Type: Spontaneous
  Country: US (occurrence: US)
  Receive Date: 20230404
  Receipt Date: 20230606
  Transmission Date: 20230722
  Serious: No
  Sender: FDA-Public Use
  Company Number: US-PFIZER INC-202300133202

PATIENT
  Age: 15 Year
  Sex: Male
  Weight: 63.492 kg

DRUGS (3)
  1. GENOTROPIN [Suspect]
     Active Substance: SOMATROPIN
     Indication: Growth hormone deficiency
     Dosage: 1.4 MG
  2. GENOTROPIN [Suspect]
     Active Substance: SOMATROPIN
     Indication: Puberty
     Dosage: 2.8 MG, DAILY
     Dates: start: 20070320
  3. GENOTROPIN [Suspect]
     Active Substance: SOMATROPIN
     Dosage: 2.8 MG, 1X/DAY (BEFORE BEDTIME)
     Dates: start: 20230320

REACTIONS (9)
  - Incorrect dose administered by device [Unknown]
  - Drug dose omission by device [Unknown]
  - Wrong technique in device usage process [Unknown]
  - Device difficult to use [Unknown]
  - Device malfunction [Unknown]
  - Device physical property issue [Unknown]
  - Device use issue [Unknown]
  - Device leakage [Unknown]
  - Hiccups [Unknown]

NARRATIVE: CASE EVENT DATE: 20230101
